FAERS Safety Report 6015938-1 (Version None)
Quarter: 2008Q4

REPORT INFORMATION
  Report Type: 
  Country: None (occurrence: None)
  Receive Date: 20081222
  Receipt Date: 20081212
  Transmission Date: 20090506
  Serious: Yes (Hospitalization)
  Sender: FDA-Public Use
  Company Number: FI-AMGEN-US323817

PATIENT
  Sex: Female

DRUGS (1)
  1. ENBREL [Suspect]
     Indication: RHEUMATOID ARTHRITIS
     Dosage: A DOSE OF 25 MG TWICE WEEKLY FIRST AND LATELY 50 MG ONCE WEEKLY. THERAPY HAS LASTED FOR SEVERAL YEAR
     Route: 058

REACTIONS (3)
  - CHEST X-RAY ABNORMAL [None]
  - GRANULOMA [None]
  - THYROID CANCER [None]
